FAERS Safety Report 5053486-6 (Version None)
Quarter: 2006Q3

REPORT INFORMATION
  Report Type: 
  Country: None (occurrence: None)
  Receive Date: 20060718
  Receipt Date: 20060707
  Transmission Date: 20061208
  Serious: Yes (Hospitalization)
  Sender: FDA-Public Use
  Company Number: GB-JNJFOC-20060700019

PATIENT
  Sex: Female
  Weight: 95 kg

DRUGS (4)
  1. TOPAMAX [Suspect]
     Route: 048
  2. TOPAMAX [Suspect]
     Indication: EPILEPSY
     Dosage: 125MG AM 100MG PM
     Route: 048
  3. CARBAMAZEPINE [Concomitant]
     Indication: EPILEPSY
     Route: 065
  4. CITALOPRAM [Concomitant]
     Indication: DEPRESSION
     Route: 065

REACTIONS (3)
  - CARDIAC ARREST [None]
  - PULMONARY EMBOLISM [None]
  - RENAL FAILURE ACUTE [None]
